FAERS Safety Report 23726756 (Version 1)
Quarter: 2024Q2

REPORT INFORMATION
  Report Type: Spontaneous
  Country: FR (occurrence: FR)
  Receive Date: 20240410
  Receipt Date: 20240410
  Transmission Date: 20240716
  Serious: Yes (Hospitalization)
  Sender: FDA-Public Use
  Company Number: FR-SUN PHARMACEUTICAL INDUSTRIES LTD-2024RR-441493

PATIENT
  Age: 86 Year
  Sex: Male

DRUGS (1)
  1. SONIDEGIB [Suspect]
     Active Substance: SONIDEGIB
     Indication: Basal cell carcinoma
     Dosage: UNK
     Route: 048
     Dates: start: 20230915, end: 20231221

REACTIONS (1)
  - Malignant renal hypertension [Not Recovered/Not Resolved]

NARRATIVE: CASE EVENT DATE: 20231221
